FAERS Safety Report 25577067 (Version 1)
Quarter: 2025Q3

REPORT INFORMATION
  Report Type: Spontaneous
  Country: US (occurrence: US)
  Receive Date: 20250718
  Receipt Date: 20250718
  Transmission Date: 20251020
  Serious: No
  Sender: SPECGX
  Company Number: US-SPECGX-T202402482

PATIENT
  Sex: Male
  Weight: 86 kg

DRUGS (4)
  1. ACETAMINOPHEN AND CODEINE [Suspect]
     Active Substance: ACETAMINOPHEN\CODEINE PHOSPHATE
     Indication: Pain
     Dosage: 1 DOSAGE FORM, QD
     Route: 065
     Dates: start: 20240828, end: 202409
  2. ACETAMINOPHEN AND CODEINE [Suspect]
     Active Substance: ACETAMINOPHEN\CODEINE PHOSPHATE
     Dosage: 1 DOSAGE FORM, BID (ONE EARLY, ONE LATER)
     Route: 065
     Dates: start: 202409, end: 202409
  3. IBUPROFEN [Suspect]
     Active Substance: IBUPROFEN
     Indication: Pain
     Route: 065
  4. FAMOTIDINE [Suspect]
     Active Substance: FAMOTIDINE
     Indication: Ulcer
     Route: 065

REACTIONS (12)
  - Sexual dysfunction [Unknown]
  - Feeling abnormal [Unknown]
  - Muscle tightness [Unknown]
  - Oropharyngeal pain [Unknown]
  - Gastrointestinal pain [Unknown]
  - Nausea [Unknown]
  - Dizziness [Unknown]
  - Vomiting [Unknown]
  - Headache [Unknown]
  - Reaction to excipient [Unknown]
  - Intentional product use issue [Unknown]
  - Suspected product tampering [Unknown]

NARRATIVE: CASE EVENT DATE: 20240101
